FAERS Safety Report 7959062-7 (Version None)
Quarter: 2011Q4

REPORT INFORMATION
  Report Type: 
  Country: None (occurrence: None)
  Receive Date: 20111206
  Receipt Date: 20110912
  Transmission Date: 20120403
  Serious: No
  Sender: FDA-Public Use
  Company Number: US-GLAXOSMITHKLINE-A0944165A

PATIENT
  Age: 9 Year
  Sex: Male

DRUGS (3)
  1. LIBRIUM [Concomitant]
  2. VYVANSE [Concomitant]
  3. LAMICTAL [Suspect]
     Indication: BIPOLAR DISORDER
     Route: 048
     Dates: start: 20110501

REACTIONS (1)
  - VOMITING [None]
